FAERS Safety Report 9540865 (Version 2)
Quarter: 2013Q4

REPORT INFORMATION
  Report Type: Spontaneous
  Country: US (occurrence: US)
  Receive Date: 20130920
  Receipt Date: 20131121
  Transmission Date: 20140711
  Serious: No
  Sender: FDA-Public Use
  Company Number: US-B.I. PHARMACEUTICALS,INC./RIDGEFIELD-2013-BI-29000BP

PATIENT
  Sex: Male
  Weight: 89 kg

DRUGS (2)
  1. PRADAXA [Suspect]
     Indication: ATRIAL FIBRILLATION
     Dosage: 300 MG
     Route: 048
     Dates: start: 2010, end: 201309
  2. PRADAXA [Suspect]
     Dosage: 150 MG
     Route: 048

REACTIONS (4)
  - Urinary incontinence [Recovered/Resolved]
  - Blood urine present [Recovered/Resolved]
  - Urinary retention [Unknown]
  - Haematuria [Unknown]
